FAERS Safety Report 5696172-1 (Version None)
Quarter: 2008Q2

REPORT INFORMATION
  Report Type: 
  Country: None (occurrence: None)
  Receive Date: 20080407
  Receipt Date: 20080327
  Transmission Date: 20081010
  Serious: Yes (Hospitalization)
  Sender: FDA-Public Use
  Company Number: US-AVENTIS-200718361US

PATIENT
  Sex: Female
  Weight: 103.18 kg

DRUGS (1)
  1. KETEK [Suspect]
     Indication: COUGH
     Dosage: DOSE: UNK
     Dates: start: 20051001

REACTIONS (14)
  - ANTINUCLEAR ANTIBODY INCREASED [None]
  - AUTOIMMUNE HEPATITIS [None]
  - COAGULOPATHY [None]
  - COLD SWEAT [None]
  - DYSPNOEA [None]
  - FAECES PALE [None]
  - HEPATIC ENZYME INCREASED [None]
  - HEPATIC STEATOSIS [None]
  - JAUNDICE [None]
  - NAUSEA [None]
  - OCULAR ICTERUS [None]
  - PAINFUL RESPIRATION [None]
  - VOMITING [None]
  - YELLOW SKIN [None]
